FAERS Safety Report 7353574-5 (Version None)
Quarter: 2011Q1

REPORT INFORMATION
  Report Type: 
  Country: None (occurrence: None)
  Receive Date: 20110315
  Receipt Date: 20110308
  Transmission Date: 20110831
  Serious: Yes (Hospitalization, Other)
  Sender: FDA-Public Use
  Company Number: US-B.I. PHARMACEUTICALS,INC./RIDGEFIELD-2011-BP-07309BP

PATIENT
  Sex: Male

DRUGS (8)
  1. NIACIN [Concomitant]
     Dosage: 500 MG
     Route: 048
     Dates: start: 20110201
  2. DIGOXIN [Concomitant]
     Indication: HEART RATE
     Dosage: 250 MCG
     Route: 048
     Dates: start: 20100101
  3. CARVEDILOL [Concomitant]
     Indication: HEART RATE
     Dosage: 50 MG
     Route: 048
     Dates: start: 20100101
  4. LIPITOR [Concomitant]
     Dosage: 80 MG
     Route: 048
     Dates: start: 20100101
  5. PRADAXA [Suspect]
     Indication: ATRIAL FIBRILLATION
     Dosage: 150 MG
     Route: 048
     Dates: start: 20101201, end: 20110201
  6. PRADAXA [Suspect]
     Dosage: 300 MG
     Route: 048
     Dates: start: 20110204
  7. ENALAPRIL MALEATE [Concomitant]
     Indication: HEART RATE
     Dosage: 10 MG
     Route: 048
     Dates: start: 20100101
  8. MULTAX [Concomitant]
     Indication: HEART RATE
     Dosage: 800 MG
     Route: 048
     Dates: start: 20100101

REACTIONS (2)
  - CONTUSION [None]
  - CEREBROVASCULAR ACCIDENT [None]
